FAERS Safety Report 16878886 (Version 1)
Quarter: 2019Q4

REPORT INFORMATION
  Report Type: Report from Study
  Country: BR (occurrence: BR)
  Receive Date: 20191002
  Receipt Date: 20191002
  Transmission Date: 20200122
  Serious: Yes (Other)
  Sender: FDA-Public Use
  Company Number: PHHY2019BR226901

PATIENT
  Age: 54 Year
  Sex: Male

DRUGS (1)
  1. DUOTRAVATAN [BAC] [Suspect]
     Active Substance: TIMOLOL MALEATE\TRAVOPROST
     Indication: GLAUCOMA
     Dosage: UNK
     Route: 065
     Dates: start: 2005

REACTIONS (11)
  - Visual impairment [Unknown]
  - Cataract [Unknown]
  - Dizziness [Unknown]
  - Thrombosis [Not Recovered/Not Resolved]
  - Eye disorder [Recovered/Resolved]
  - Vision blurred [Unknown]
  - Cardiac arrest [Recovered/Resolved]
  - Diabetes mellitus [Unknown]
  - Cerebrovascular accident [Recovered/Resolved]
  - Blindness unilateral [Unknown]
  - Headache [Unknown]

NARRATIVE: CASE EVENT DATE: 200911
